FAERS Safety Report 4415642-7 (Version None)
Quarter: 2004Q3

REPORT INFORMATION
  Report Type: 
  Country: None (occurrence: None)
  Receive Date: 20040730
  Receipt Date: 20040720
  Transmission Date: 20050211
  Serious: No
  Sender: FDA-Public Use
  Company Number: 2004UW13527

PATIENT
  Sex: Female

DRUGS (1)
  1. SEROQUEL [Suspect]

REACTIONS (3)
  - INTENTIONAL SELF-INJURY [None]
  - OVERDOSE [None]
  - SUICIDAL IDEATION [None]
